FAERS Safety Report 8305165-7 (Version None)
Quarter: 2012Q1

REPORT INFORMATION
  Report Type: 
  Country: None (occurrence: None)
  Receive Date: 20120326
  Receipt Date: 20110304
  Transmission Date: 20120608
  Serious: Yes (Other)
  Sender: FDA-Public Use
  Company Number: PHHY2010US72228

PATIENT
  Age: 21 Year
  Sex: Female

DRUGS (1)
  1. TASIGNA [Suspect]
     Indication: CHRONIC MYELOID LEUKAEMIA
     Dosage: 300 MG, BID

REACTIONS (8)
  - BRAIN OEDEMA [None]
  - DIPLOPIA [None]
  - NAUSEA [None]
  - FACIAL PAIN [None]
  - SCLERAL DISCOLOURATION [None]
  - MIGRAINE [None]
  - HEADACHE [None]
  - PERIORBITAL OEDEMA [None]
